FAERS Safety Report 14890201 (Version 1)
Quarter: 2018Q2

REPORT INFORMATION
  Report Type: Spontaneous
  Country: CH (occurrence: CH)
  Receive Date: 20180514
  Receipt Date: 20180514
  Transmission Date: 20180711
  Serious: Yes (Hospitalization)
  Sender: FDA-Public Use
  Company Number: CH-TEVA-2018-CH-892246

PATIENT
  Age: 27 Year
  Sex: Male

DRUGS (11)
  1. CLEXANE [Suspect]
     Active Substance: ENOXAPARIN SODIUM
     Dosage: 40 MILLIGRAM DAILY;
     Route: 058
     Dates: start: 201804
  2. TAVEGYL [Concomitant]
     Active Substance: CLEMASTINE FUMARATE
     Dates: start: 20180416
  3. IRFEN [Suspect]
     Active Substance: IBUPROFEN
     Indication: PANNICULITIS
     Dosage: 1800 MILLIGRAM DAILY;
     Route: 048
     Dates: start: 20180409, end: 20180416
  4. NEXIUM [Suspect]
     Active Substance: ESOMEPRAZOLE MAGNESIUM
     Dosage: 20 MILLIGRAM DAILY;
     Route: 048
     Dates: start: 20180413, end: 20180416
  5. CETIRIZINE [Concomitant]
     Active Substance: CETIRIZINE HYDROCHLORIDE
     Dosage: 40 MILLIGRAM DAILY;
     Dates: start: 20180418, end: 20180423
  6. MOTILIUM [Concomitant]
     Active Substance: DOMPERIDONE
  7. DAFALGAN [Concomitant]
     Active Substance: ACETAMINOPHEN
     Dates: start: 20180423
  8. AERIUS [Concomitant]
     Active Substance: DESLORATADINE
     Dosage: 20 MILLIGRAM DAILY;
     Dates: start: 20180416
  9. PARACETAMOL + FOSF. DE CODEINA [Concomitant]
     Dosage: 3 DOSAGE FORMS DAILY;
     Dates: start: 20180418, end: 20180423
  10. PREDNISONE. [Concomitant]
     Active Substance: PREDNISONE
     Dosage: 60 MILLIGRAM DAILY;
     Dates: start: 20180421
  11. PARACETAMOL [Suspect]
     Active Substance: ACETAMINOPHEN
     Dosage: 4 GRAM DAILY;
     Route: 048
     Dates: start: 20180413, end: 20180416

REACTIONS (3)
  - Angioedema [Recovered/Resolved]
  - Rash maculo-papular [Recovered/Resolved]
  - Arthralgia [Recovered/Resolved]

NARRATIVE: CASE EVENT DATE: 20180416
